FAERS Safety Report 23112991 (Version 1)
Quarter: 2023Q4

REPORT INFORMATION
  Report Type: Spontaneous
  Country: US (occurrence: US)
  Receive Date: 20231027
  Receipt Date: 20231027
  Transmission Date: 20240110
  Serious: Yes (Other)
  Sender: FDA-Public Use
  Company Number: US-ELI_LILLY_AND_COMPANY-US202310015450

PATIENT
  Age: 55 Year
  Sex: Female

DRUGS (1)
  1. RETEVMO [Suspect]
     Active Substance: SELPERCATINIB
     Indication: Neuroendocrine tumour of the lung
     Dosage: 40 MG, UNKNOWN
     Route: 065
     Dates: start: 2021

REACTIONS (1)
  - Malignant neoplasm progression [Not Recovered/Not Resolved]
